FAERS Safety Report 20966786 (Version 1)
Quarter: 2022Q2

REPORT INFORMATION
  Report Type: Spontaneous
  Country: AT (occurrence: AT)
  Receive Date: 20220616
  Receipt Date: 20220616
  Transmission Date: 20220721
  Serious: No
  Sender: FDA-Public Use
  Company Number: None

PATIENT

DRUGS (1)
  1. SOTROVIMAB [Suspect]
     Active Substance: SOTROVIMAB
     Indication: COVID-19
     Dosage: 30 ML(TOTAL)(ACCORDING TO TECHNICAL INFORMATION AND RECOMMENDATIONS FOR USE)
     Route: 065
     Dates: start: 20220506, end: 20220506

REACTIONS (2)
  - Administration site extravasation [Unknown]
  - Oedema [Unknown]

NARRATIVE: CASE EVENT DATE: 20220506
